FAERS Safety Report 5886812-6 (Version None)
Quarter: 2008Q3

REPORT INFORMATION
  Report Type: 
  Country: None (occurrence: None)
  Receive Date: 20080915
  Receipt Date: 20080910
  Transmission Date: 20090109
  Serious: Yes (Death, Life-Threatening, Hospitalization)
  Sender: FDA-Public Use
  Company Number: 2008SP018671

PATIENT
  Age: 59 Year
  Sex: Female
  Weight: 66 kg

DRUGS (2)
  1. PEG-INTRON [Suspect]
     Indication: HEPATITIS C
     Dosage: 0.6 ML; QW; SC
     Route: 058
     Dates: start: 20070202, end: 20070415
  2. RIBAVIRIN [Suspect]
     Indication: HEPATITIS C
     Dosage: 1000 MG; BID; PO
     Route: 048
     Dates: start: 20070202, end: 20070415

REACTIONS (7)
  - GENERALISED OEDEMA [None]
  - INTRASPINAL ABSCESS [None]
  - NEOPLASM [None]
  - NERVOUS SYSTEM DISORDER [None]
  - QUADRIPARESIS [None]
  - RESPIRATORY FAILURE [None]
  - THROMBOPHLEBITIS [None]
